FAERS Safety Report 4750965-3 (Version None)
Quarter: 2005Q3

REPORT INFORMATION
  Report Type: 
  Country: None (occurrence: None)
  Receive Date: 20050822
  Receipt Date: 20050816
  Transmission Date: 20060218
  Serious: Yes (Disabling)
  Sender: FDA-Public Use
  Company Number: CLOF-10074

PATIENT
  Age: 72 Year
  Sex: Male

DRUGS (14)
  1. CLOFARABINE [Suspect]
     Indication: ACUTE MYELOID LEUKAEMIA
     Dates: start: 20040717, end: 20040521
  2. METOCLOPRAMIDE [Concomitant]
  3. COTRIMOXAZOLE [Concomitant]
  4. ONDANSETRON [Concomitant]
  5. PARACETAMOL [Concomitant]
  6. GTN SPRAY [Concomitant]
  7. DIFFLAM [Concomitant]
  8. ACYCLOVIR [Concomitant]
  9. ZOVIRAX [Concomitant]
  10. CHLORHEXIDINE [Concomitant]
  11. HYDROXYUREA [Concomitant]
  12. ALLOPURINOL [Concomitant]
  13. NIFEDIPINE LA [Concomitant]
  14. ATORVASTATIN CALCIUM [Concomitant]

REACTIONS (2)
  - LYMPHOCYTE COUNT DECREASED [None]
  - WHITE BLOOD CELL COUNT DECREASED [None]
